FAERS Safety Report 7343686-4 (Version None)
Quarter: 2011Q1

REPORT INFORMATION
  Report Type: 
  Country: None (occurrence: None)
  Receive Date: 20110310
  Receipt Date: 20101022
  Transmission Date: 20110831
  Serious: No
  Sender: FDA-Public Use
  Company Number: A0888255A

PATIENT
  Age: 63 Year
  Sex: Male

DRUGS (2)
  1. NICORETTE (MINT) [Suspect]
     Dates: end: 20101021
  2. NICORETTE [Suspect]
     Dates: end: 20101021

REACTIONS (6)
  - SWELLING FACE [None]
  - ORAL PAIN [None]
  - SENSITIVITY OF TEETH [None]
  - DRUG ADMINISTRATION ERROR [None]
  - FACIAL PAIN [None]
  - GINGIVAL PAIN [None]
